FAERS Safety Report 18770162 (Version 1)
Quarter: 2021Q1

REPORT INFORMATION
  Report Type: Spontaneous
  Country: FR (occurrence: FR)
  Receive Date: 20210122
  Receipt Date: 20210122
  Transmission Date: 20210419
  Serious: Yes (Other)
  Sender: FDA-Public Use
  Company Number: FR-AMGEN-FRASP2021007523

PATIENT
  Sex: Female

DRUGS (1)
  1. ARANESP [Suspect]
     Active Substance: DARBEPOETIN ALFA
     Indication: NEPHROGENIC ANAEMIA
     Dosage: 40 MILLIGRAM, QWK
     Route: 065
     Dates: start: 202004

REACTIONS (2)
  - Dialysis [Unknown]
  - Erythema [Unknown]

NARRATIVE: CASE EVENT DATE: 202011
